FAERS Safety Report 19125427 (Version 4)
Quarter: 2021Q2

REPORT INFORMATION
  Report Type: Report from Study
  Country: None (occurrence: RO)
  Receive Date: 20210412
  Receipt Date: 20210517
  Transmission Date: 20210717
  Serious: Yes (Hospitalization)
  Sender: FDA-Public Use
  Company Number: RO-ABBVIE-21K-135-3854036-00

PATIENT
  Age: 68 Year
  Sex: Male

DRUGS (2)
  1. DUODOPA [Suspect]
     Active Substance: CARBIDOPA\LEVODOPA
  2. DUODOPA [Suspect]
     Active Substance: CARBIDOPA\LEVODOPA
     Indication: PARKINSON^S DISEASE
     Dosage: DM 8.00, DC 2.30, ED 1.70, NRED 1, DMN 0.00, DCN 0.00, EDN 0.00, NREDN 0.
     Route: 050
     Dates: start: 20161125

REACTIONS (5)
  - Device connection issue [Unknown]
  - COVID-19 [Recovered/Resolved]
  - Gastrointestinal disorder [Recovering/Resolving]
  - Somnolence [Recovering/Resolving]
  - On and off phenomenon [Recovered/Resolved]

NARRATIVE: CASE EVENT DATE: 202104
